FAERS Safety Report 12847513 (Version 2)
Quarter: 2016Q4

REPORT INFORMATION
  Report Type: Spontaneous
  Country: US (occurrence: US)
  Receive Date: 20161014
  Receipt Date: 20161214
  Transmission Date: 20170207
  Serious: Yes (Death)
  Sender: FDA-Public Use
  Company Number: US-ACADIA PHARMACEUTICALS INC.-ACA-2016-000925

PATIENT
  Age: 78 Year
  Sex: Male

DRUGS (2)
  1. DOXYCYCLINE HYCLATE. [Concomitant]
     Active Substance: DOXYCYCLINE HYCLATE
     Indication: PRODUCT USED FOR UNKNOWN INDICATION
  2. NUPLAZID [Suspect]
     Active Substance: PIMAVANSERIN TARTRATE
     Indication: PRODUCT USED FOR UNKNOWN INDICATION
     Dosage: 34 MG, QAM
     Route: 048
     Dates: start: 20160727, end: 20161009

REACTIONS (2)
  - Death [Fatal]
  - Feeding disorder [Recovered/Resolved]

NARRATIVE: CASE EVENT DATE: 20161009
